FAERS Safety Report 7967502-2 (Version None)
Quarter: 2011Q4

REPORT INFORMATION
  Report Type: 
  Country: None (occurrence: None)
  Receive Date: 20111209
  Receipt Date: 20110623
  Transmission Date: 20120403
  Serious: No
  Sender: FDA-Public Use
  Company Number: US-GLAXOSMITHKLINE-A0936922A

PATIENT
  Age: 47 Year
  Sex: Female
  Weight: 89.5 kg

DRUGS (3)
  1. INSULIN [Concomitant]
  2. AVANDAMET [Suspect]
     Indication: DIABETES MELLITUS
     Route: 048
     Dates: end: 20070601
  3. LOTREL [Concomitant]

REACTIONS (1)
  - CHEST PAIN [None]
